FAERS Safety Report 13812725 (Version 2)
Quarter: 2017Q3

REPORT INFORMATION
  Report Type: Spontaneous
  Country: US (occurrence: US)
  Receive Date: 20170729
  Receipt Date: 20170807
  Transmission Date: 20171127
  Serious: Yes (Other)
  Sender: FDA-Public Use
  Company Number: US-AUROBINDO-AUR-APL-2017-37770

PATIENT
  Age: 31 Year
  Sex: Male

DRUGS (3)
  1. LOPERAMIDE [Suspect]
     Active Substance: LOPERAMIDE
     Dosage: 2 MG, UNK
  2. MESALAMINE. [Concomitant]
     Active Substance: MESALAMINE
     Indication: PRODUCT USED FOR UNKNOWN INDICATION
     Dosage: 1000 MG, UNK
     Route: 065
  3. LOPERAMIDE [Suspect]
     Active Substance: LOPERAMIDE
     Indication: PRODUCT USED FOR UNKNOWN INDICATION
     Dosage: 2 MG, OVER THE LAST 36 HOURS
     Route: 065

REACTIONS (10)
  - Overdose [Recovered/Resolved]
  - Toxicity to various agents [Recovered/Resolved]
  - Drug abuse [Recovered/Resolved]
  - Electrocardiogram T wave inversion [Recovered/Resolved]
  - Torsade de pointes [Recovered/Resolved]
  - Atrioventricular block [Recovered/Resolved]
  - Bundle branch block left [Recovered/Resolved]
  - Syncope [Recovered/Resolved]
  - Conduction disorder [Recovered/Resolved]
  - Electrocardiogram QT prolonged [Recovered/Resolved]
